FAERS Safety Report 5058683-1 (Version None)
Quarter: 2006Q3

REPORT INFORMATION
  Report Type: 
  Country: None (occurrence: None)
  Receive Date: 20060721
  Receipt Date: 20051108
  Transmission Date: 20061208
  Serious: No
  Sender: FDA-Public Use
  Company Number: US-AMGEN-US157122

PATIENT
  Sex: Female
  Weight: 96.5 kg

DRUGS (18)
  1. EPOGEN [Suspect]
     Indication: DIALYSIS
     Route: 042
     Dates: start: 20020401, end: 20051105
  2. INTERFERON [Suspect]
     Route: 058
     Dates: start: 20050916, end: 20051101
  3. DULOXETINE HCL [Suspect]
     Dates: start: 20050916
  4. ARANESP [Suspect]
     Route: 048
  5. MEDICINALPRODUCT NOT SPECIFIED BY SENDER [Concomitant]
     Route: 048
  6. MEDICINALPRODUCT NOT SPECIFIED BY SENDER [Concomitant]
  7. MEDICINALPRODUCT NOT SPECIFIED BY SENDER [Concomitant]
  8. MEDICINALPRODUCT NOT SPECIFIED BY SENDER [Concomitant]
  9. MEDICINALPRODUCT NOT SPECIFIED BY SENDER [Concomitant]
  10. MEDICINALPRODUCT NOT SPECIFIED BY SENDER [Concomitant]
  11. MEDICINALPRODUCT NOT SPECIFIED BY SENDER [Concomitant]
  12. MEDICINALPRODUCT NOT SPECIFIED BY SENDER [Concomitant]
  13. MEDICINALPRODUCT NOT SPECIFIED BY SENDER [Concomitant]
  14. MEDICINALPRODUCT NOT SPECIFIED BY SENDER [Concomitant]
  15. MEDICINALPRODUCT NOT SPECIFIED BY SENDER [Concomitant]
  16. MEDICINALPRODUCT NOT SPECIFIED BY SENDER [Concomitant]
  17. MEDICINALPRODUCT NOT SPECIFIED BY SENDER [Concomitant]
  18. MEDICINALPRODUCT NOT SPECIFIED BY SENDER [Concomitant]

REACTIONS (2)
  - ANAEMIA [None]
  - WHITE BLOOD CELL COUNT DECREASED [None]
